FAERS Safety Report 6151503-3 (Version None)
Quarter: 2009Q2

REPORT INFORMATION
  Report Type: 
  Country: None (occurrence: None)
  Receive Date: 20090408
  Receipt Date: 20090330
  Transmission Date: 20091009
  Serious: Yes (Disabling, Other)
  Sender: FDA-Public Use
  Company Number: 2008SP013356

PATIENT
  Age: 61 Year
  Sex: Male
  Weight: 74 kg

DRUGS (2)
  1. REBETOL [Suspect]
     Indication: HEPATITIS C
     Dates: start: 20060210, end: 20060520
  2. PEGASYS [Suspect]
     Indication: HEPATITIS C
     Dates: start: 20060210, end: 20060520

REACTIONS (2)
  - ASTHENIA [None]
  - SYNCOPE [None]
